FAERS Safety Report 18688792 (Version 4)
Quarter: 2021Q2

REPORT INFORMATION
  Report Type: Report from Study
  Country: CA (occurrence: CA)
  Receive Date: 20201231
  Receipt Date: 20210609
  Transmission Date: 20210717
  Serious: Yes (Death)
  Sender: FDA-Public Use
  Company Number: CA-JNJFOC-20201252466

PATIENT
  Age: 61 Year
  Sex: Male
  Weight: 67 kg

DRUGS (1)
  1. REMICADE [Suspect]
     Active Substance: INFLIXIMAB
     Indication: CROHN^S DISEASE
     Route: 042
     Dates: start: 20150622, end: 20201228

REACTIONS (3)
  - Lung neoplasm malignant [Fatal]
  - Metastases to bone [Fatal]
  - Abdominal pain [Unknown]

NARRATIVE: CASE EVENT DATE: 20201215
